FAERS Safety Report 7249341-3 (Version None)
Quarter: 2011Q1

REPORT INFORMATION
  Report Type: 
  Country: None (occurrence: None)
  Receive Date: 20110118
  Receipt Date: 20110104
  Transmission Date: 20110831
  Serious: No
  Sender: FDA-Public Use
  Company Number: 024743

PATIENT
  Age: 45 Year
  Sex: Male

DRUGS (5)
  1. VALPROIC ACID [Concomitant]
  2. VIMPAT [Suspect]
     Indication: EPILEPSY
     Dates: end: 20110104
  3. PHENOBARBITAL [Concomitant]
  4. KEPPRA [Suspect]
     Indication: EPILEPSY
  5. PHENYTOIN [Concomitant]

REACTIONS (1)
  - ACUTE MYOCARDIAL INFARCTION [None]
